FAERS Safety Report 5875478-7 (Version None)
Quarter: 2008Q3

REPORT INFORMATION
  Report Type: 
  Country: None (occurrence: None)
  Receive Date: 20080909
  Receipt Date: 20080827
  Transmission Date: 20090109
  Serious: Yes (Hospitalization)
  Sender: FDA-Public Use
  Company Number: GB-ROCHE-572780

PATIENT
  Sex: Female
  Weight: 86.3 kg

DRUGS (2)
  1. PEGASYS [Suspect]
     Route: 058
     Dates: start: 20071109, end: 20080425
  2. COPEGUS [Suspect]
     Route: 048
     Dates: start: 20071109, end: 20080425

REACTIONS (6)
  - BLOOD IMMUNOGLOBULIN A DECREASED [None]
  - BLOOD IMMUNOGLOBULIN M DECREASED [None]
  - HYPOGLOBULINAEMIA [None]
  - HYPOPROTEINAEMIA [None]
  - OEDEMA [None]
  - THROMBOCYTHAEMIA [None]
